FAERS Safety Report 5530175-2 (Version None)
Quarter: 2007Q4

REPORT INFORMATION
  Report Type: 
  Country: None (occurrence: None)
  Receive Date: 20071127
  Receipt Date: 20071127
  Transmission Date: 20080405
  Serious: Yes (Other)
  Sender: FDA-Public Use
  Company Number: None

PATIENT
  Age: 32 Year
  Sex: Female
  Weight: 77.1115 kg

DRUGS (4)
  1. LYRICA [Suspect]
     Indication: NEURALGIA
     Dosage: 75MG TID PO
     Route: 048
     Dates: start: 20070901, end: 20071101
  2. LYRICA [Suspect]
     Indication: SCIATICA
     Dosage: 75MG TID PO
     Route: 048
     Dates: start: 20070901, end: 20071101
  3. LYRICA [Suspect]
     Indication: NEURALGIA
     Dosage: 75MG TID PO
     Route: 048
     Dates: start: 20060701
  4. LYRICA [Suspect]
     Indication: SCIATICA
     Dosage: 75MG TID PO
     Route: 048
     Dates: start: 20060701

REACTIONS (9)
  - DIZZINESS [None]
  - HEADACHE [None]
  - HEART RATE INCREASED [None]
  - HYPERTENSION [None]
  - ORTHOSTATIC HYPOTENSION [None]
  - TINNITUS [None]
  - TREMOR [None]
  - VERTIGO [None]
  - VESTIBULAR DISORDER [None]
